FAERS Safety Report 10143847 (Version 1)
Quarter: 2014Q2

REPORT INFORMATION
  Report Type: Spontaneous
  Country: GB (occurrence: GB)
  Receive Date: 20140430
  Receipt Date: 20140430
  Transmission Date: 20141212
  Serious: Yes (Death, Other)
  Sender: FDA-Public Use
  Company Number: GB-OTSUKA-EU-2014-10145

PATIENT
  Age: 72 Year
  Sex: Female

DRUGS (4)
  1. SAMSCA [Suspect]
     Indication: HYPONATRAEMIA
     Dosage: 15 MG MILLIGRAM(S), UNKNOWN
     Route: 048
     Dates: start: 20140410, end: 20140410
  2. COLECALCIFEROL [Concomitant]
     Dosage: 25 ?G MICROGRAM(S), DAILY DOSE
     Route: 065
  3. GLYCOPYRRONIUM BROMIDE [Concomitant]
     Dosage: 44 ?G MICROGRAM(S), DAILY DOSE
     Route: 055
  4. OXYGEN [Concomitant]
     Dosage: UNK, UNKNOWN
     Route: 065

REACTIONS (5)
  - Rash macular [Unknown]
  - Pruritus [Unknown]
  - Erythema [Unknown]
  - Pallor [Unknown]
  - Lung neoplasm malignant [Fatal]
